FAERS Safety Report 21740032 (Version 3)
Quarter: 2023Q1

REPORT INFORMATION
  Report Type: Spontaneous
  Country: US (occurrence: US)
  Receive Date: 20221216
  Receipt Date: 20230331
  Transmission Date: 20230418
  Serious: No
  Sender: FDA-Public Use
  Company Number: US-BIOGEN-2022BI01164316

PATIENT
  Sex: Female

DRUGS (2)
  1. TYSABRI [Suspect]
     Active Substance: NATALIZUMAB
     Indication: Multiple sclerosis
     Route: 050
     Dates: start: 20200817, end: 20220124
  2. TYSABRI [Suspect]
     Active Substance: NATALIZUMAB
     Route: 050
     Dates: start: 20221007

REACTIONS (11)
  - Hemihypoaesthesia [Not Recovered/Not Resolved]
  - Vitreous floaters [Unknown]
  - Memory impairment [Unknown]
  - Mental impairment [Unknown]
  - Gait disturbance [Unknown]
  - Visual impairment [Unknown]
  - Aggression [Unknown]
  - COVID-19 [Unknown]
  - Vision blurred [Recovered/Resolved]
  - Muscle spasms [Recovered/Resolved]
  - Tremor [Recovered/Resolved]

NARRATIVE: CASE EVENT DATE: 20220101
